FAERS Safety Report 10923175 (Version 5)
Quarter: 2016Q3

REPORT INFORMATION
  Report Type: Spontaneous
  Country: US (occurrence: US)
  Receive Date: 20150317
  Receipt Date: 20160818
  Transmission Date: 20161109
  Serious: Yes (Hospitalization, Other)
  Sender: FDA-Public Use
  Company Number: US-009507513-1110USA03271

PATIENT
  Sex: Female
  Weight: 69.39 kg

DRUGS (5)
  1. FOSAMAX [Suspect]
     Active Substance: ALENDRONATE SODIUM
     Indication: OSTEOPENIA
  2. ALENDRONATE SODIUM. [Suspect]
     Active Substance: ALENDRONATE SODIUM
     Indication: OSTEOPENIA
  3. FOSAMAX [Suspect]
     Active Substance: ALENDRONATE SODIUM
     Indication: OSTEOPOROSIS
     Dosage: 70 MG, QW
     Route: 048
     Dates: start: 2002, end: 200807
  4. ALENDRONATE SODIUM. [Suspect]
     Active Substance: ALENDRONATE SODIUM
     Indication: OSTEOPOROSIS
     Dosage: 70 MG, QW
     Route: 048
     Dates: start: 200807, end: 201111
  5. ALENDRONATE SODIUM. [Suspect]
     Active Substance: ALENDRONATE SODIUM
     Indication: OSTEOPOROSIS
     Dosage: 70 MG, QW
     Route: 065
     Dates: start: 20080708, end: 20090708

REACTIONS (25)
  - Foot fracture [Unknown]
  - Dialysis [Unknown]
  - Blood potassium increased [Unknown]
  - Peripheral arthritis [Unknown]
  - Large intestinal polypectomy [Unknown]
  - Back pain [Unknown]
  - Hyperlipidaemia [Unknown]
  - Gastric ulcer [Unknown]
  - Intramedullary rod insertion [Unknown]
  - Intramedullary rod insertion [Unknown]
  - Sleep apnoea syndrome [Unknown]
  - Renal stone removal [Unknown]
  - Bronchitis [Recovered/Resolved]
  - Essential tremor [Unknown]
  - Pulmonary mass [Unknown]
  - Arthropathy [Unknown]
  - Femur fracture [Recovered/Resolved]
  - Femur fracture [Recovered/Resolved]
  - Foot fracture [Unknown]
  - Thyroid mass [Unknown]
  - Nephrolithiasis [Unknown]
  - Joint swelling [Unknown]
  - Cardiac murmur [Unknown]
  - Muscular weakness [Unknown]
  - Spinal osteoarthritis [Unknown]

NARRATIVE: CASE EVENT DATE: 200512
